FAERS Safety Report 9587061 (Version 2)
Quarter: 2013Q4

REPORT INFORMATION
  Report Type: Spontaneous
  Country: CA (occurrence: CA)
  Receive Date: 20131003
  Receipt Date: 20131029
  Transmission Date: 20140711
  Serious: Yes (Hospitalization)
  Sender: FDA-Public Use
  Company Number: CA-AMGEN-CANSP2013069156

PATIENT
  Age: 60 Year
  Sex: Male
  Weight: 101.5 kg

DRUGS (6)
  1. ENBREL [Suspect]
     Indication: ANKYLOSING SPONDYLITIS
     Dosage: 50 MG, QWK
     Route: 058
     Dates: start: 20130119
  2. GLYBURIDE [Concomitant]
     Dosage: UNK
  3. ASPIRIN [Concomitant]
     Dosage: UNK
  4. HYDROCHLOROTHIAZIDE [Concomitant]
     Dosage: UNK
  5. DILTIAZEM [Concomitant]
     Dosage: UNK
  6. BETAMETHASONE [Concomitant]
     Dosage: UNK

REACTIONS (2)
  - Cervical vertebral fracture [Recovering/Resolving]
  - Fall [Recovered/Resolved]
